FAERS Safety Report 23639106 (Version 3)
Quarter: 2025Q3

REPORT INFORMATION
  Report Type: Spontaneous
  Country: US (occurrence: US)
  Receive Date: 20240315
  Receipt Date: 20250822
  Transmission Date: 20251021
  Serious: Yes (Other)
  Sender: MERCK SHARP & DOHME LLC
  Company Number: US-009507513-2403USA003214

PATIENT
  Age: 69 Year
  Sex: Female

DRUGS (9)
  1. KEYTRUDA [Suspect]
     Active Substance: PEMBROLIZUMAB
     Indication: Pancreatic carcinoma
     Dosage: DOSE DESCRIPTION : 400 MG Q 42 DAYS?DAILY DOSE : 9.6 MILLIGRAM?REGIMEN DOSE : 400  MILLIGRAM
     Route: 042
     Dates: start: 2021
  2. CARAFATE [Concomitant]
     Active Substance: SUCRALFATE
  3. CREON [Suspect]
     Active Substance: PANCRELIPASE AMYLASE\PANCRELIPASE LIPASE\PANCRELIPASE PROTEASE
  4. PROLIA [Suspect]
     Active Substance: DENOSUMAB
  5. SYNTHROID [Concomitant]
     Active Substance: LEVOTHYROXINE SODIUM
  6. UNSPECIFIED INGREDIENT [Concomitant]
     Active Substance: UNSPECIFIED INGREDIENT
  7. RESTASIS [Concomitant]
     Active Substance: CYCLOSPORINE
  8. CALCIUM [Concomitant]
     Active Substance: CALCIUM
  9. VITAMIN D [Concomitant]
     Active Substance: VITAMIN D NOS

REACTIONS (13)
  - Cataract [Not Recovered/Not Resolved]
  - Tooth disorder [Unknown]
  - Thyroid disorder [Not Recovered/Not Resolved]
  - Tooth extraction [Unknown]
  - Gingival recession [Not Recovered/Not Resolved]
  - Dental caries [Not Recovered/Not Resolved]
  - Oral discomfort [Unknown]
  - Incorrect product administration duration [Unknown]
  - Unevaluable event [Unknown]
  - Abscess oral [Unknown]
  - Fracture [Unknown]
  - Abdominal hernia [Unknown]
  - Arterial disorder [Unknown]
